FAERS Safety Report 19890830 (Version 1)
Quarter: 2021Q3

REPORT INFORMATION
  Report Type: Spontaneous
  Country: CH (occurrence: CH)
  Receive Date: 20210927
  Receipt Date: 20210927
  Transmission Date: 20211014
  Serious: Yes (Hospitalization, Other)
  Sender: FDA-Public Use
  Company Number: CH-009507513-2109CHE005374

PATIENT
  Age: 58 Year
  Sex: Male

DRUGS (18)
  1. NEXIUM [Concomitant]
     Active Substance: ESOMEPRAZOLE MAGNESIUM
     Dosage: NEXIUM MUPS TABLETS 40 MG (ESOMEPRAZOLE)1?0?0?0
     Route: 048
  2. EZETIMIBE. [Concomitant]
     Active Substance: EZETIMIBE
     Dosage: EZETIMIBE MSD TABLETS 10 MG (EZETIMIBE)1?0?0?0
  3. ANDREAFOL [Concomitant]
     Dosage: ANDREAFOL TABLETS 0.4 MG (FOLIC ACID) 1?0?0?0
  4. KEYTRUDA [Suspect]
     Active Substance: PEMBROLIZUMAB
     Indication: NON-SMALL CELL LUNG CANCER
     Dosage: KEYTRUDA (PEMBROLIZUMAB) FROM 07/2020 ACCORDING TO THE SCHEME (PREVIOUSLY 4 CYCLES)
     Route: 041
     Dates: start: 202007, end: 20210216
  5. ENTRESTO [Concomitant]
     Active Substance: SACUBITRIL\VALSARTAN
     Dosage: ENTRESTO TABLETS 100 MG (VALSARTAN/SACUBITRIL) 1?0?1?0 PAUSED
     Route: 048
  6. PRIMPERAN [Concomitant]
     Active Substance: METOCLOPRAMIDE HYDROCHLORIDE
     Dosage: PRIMPERAN TABLETS 10MG (METOCLOPRAMID) USSUALLY MAX. 4X/24H ; AS NECESSARY
     Route: 048
  7. PEMETREXED. [Concomitant]
     Active Substance: PEMETREXED
     Dosage: PEMETREXED (PEMETREXED) FROM 07/2020 ACCORDING TO THE SCHEME (PREVIOUSLY 4 CYCLES)
     Route: 041
     Dates: start: 202007, end: 20210216
  8. VEMLIDY [Concomitant]
     Active Substance: TENOFOVIR ALAFENAMIDE FUMARATE
     Dosage: VEMLIDY TABLETS 25 MG (TENOFOVIR) 1?0?0?0
     Route: 048
  9. ISONIAZID. [Concomitant]
     Active Substance: ISONIAZID
     Dosage: ISONIAZID TABLETS 150/200 MG (ISONIAZID)1?0?0?0
     Route: 048
  10. DAFALGAN [Concomitant]
     Active Substance: ACETAMINOPHEN
     Dosage: DAFALGAN 500 MG TABLETS (ACETAMINOPHEN)USUALLY MAX. 4X/24H ; AS NECESSARY
     Route: 048
  11. CALCIMAGON D3 [Concomitant]
     Active Substance: CALCIUM\CHOLECALCIFEROL
     Dosage: CALCIMAGON D3 CHEWABLE TABLETS 500 MG/800 U (CALCIUM, CHOLECALCIFEROL) 1?0?0?0
     Route: 048
  12. VITAMIN B6 [Concomitant]
     Active Substance: PYRIDOXINE HYDROCHLORIDE
     Dosage: VITAMIN B6 TABLETS 40 MG (PYRIDOXINE)1?0?0?0 2X/WEEK
     Route: 048
  13. INSPRA [Concomitant]
     Active Substance: EPLERENONE
     Dosage: INSPRA TABLETS 50 MG (EPLERENONE)1?0?0?0 PAUSED
     Route: 048
  14. XARELTO [Suspect]
     Active Substance: RIVAROXABAN
     Indication: PULMONARY EMBOLISM
     Dosage: XARELTO TABLETS 20 MG (RIVAROXABAN)1?0?0?0 PAUSED
     Route: 048
  15. METOPROLOL. [Concomitant]
     Active Substance: METOPROLOL
     Dosage: METOPROLOL 100MG (METOPROLOL) 1?0?1?0
     Route: 048
  16. EUTHYROX [Concomitant]
     Active Substance: LEVOTHYROXINE SODIUM
     Dosage: EUTHYROX TABLETS 50 MCG (LEVOTHYROXINE)1.5?0?0?0
     Route: 048
  17. TOREM [TORASEMIDE] [Concomitant]
     Active Substance: TORSEMIDE
     Dosage: TOREM TABLETS 10 MG (TORASEMIDE) 1?0?0?0 PAUSED
     Route: 048
  18. ROSUVASTATIN. [Concomitant]
     Active Substance: ROSUVASTATIN
     Dosage: ROSUVASTATIN TABLETS 10 MG (ROSUVASTATIN)1?0?0?0
     Route: 048

REACTIONS (2)
  - Lower gastrointestinal haemorrhage [Unknown]
  - Pancytopenia [Recovering/Resolving]

NARRATIVE: CASE EVENT DATE: 20210303
